FAERS Safety Report 4847305-8 (Version None)
Quarter: 2005Q4

REPORT INFORMATION
  Report Type: 
  Country: None (occurrence: None)
  Receive Date: 20051207
  Receipt Date: 20051005
  Transmission Date: 20060501
  Serious: Yes (Hospitalization, Other)
  Sender: FDA-Public Use
  Company Number: US-MERCK-0510USA04592

PATIENT
  Age: 62 Year
  Sex: Male
  Weight: 91 kg

DRUGS (12)
  1. VIOXX [Suspect]
     Indication: PAIN
     Route: 048
     Dates: start: 20000101
  2. COUMADIN [Concomitant]
     Route: 048
  3. LASIX [Concomitant]
     Route: 048
  4. GLUCOPHAGE [Concomitant]
     Route: 048
  5. SYNTHROID [Concomitant]
     Route: 048
  6. LANOXIN [Concomitant]
     Route: 048
  7. K-DUR 10 [Concomitant]
     Route: 048
  8. AVANDIA [Concomitant]
     Route: 048
  9. LANTUS [Concomitant]
     Route: 058
  10. TRICOR [Concomitant]
     Route: 048
  11. ALLEGRA [Concomitant]
     Route: 048
  12. ASCORBIC ACID [Concomitant]
     Route: 065

REACTIONS (5)
  - CEREBROVASCULAR ACCIDENT [None]
  - COAGULOPATHY [None]
  - HEMIPARESIS [None]
  - HYPERTENSION [None]
  - NEPHROLITHIASIS [None]
